FAERS Safety Report 23725180 (Version 1)
Quarter: 2024Q2

REPORT INFORMATION
  Report Type: Spontaneous
  Country: IT (occurrence: IT)
  Receive Date: 20240410
  Receipt Date: 20240410
  Transmission Date: 20240716
  Serious: Yes (Other)
  Sender: FDA-Public Use
  Company Number: None

PATIENT
  Age: 16 Year
  Sex: Male

DRUGS (1)
  1. RIFAMPIN [Suspect]
     Active Substance: RIFAMPIN
     Indication: Antibiotic therapy
     Dosage: 300 MG
     Route: 048
     Dates: start: 20240322, end: 20240322

REACTIONS (4)
  - Drug hypersensitivity [Recovering/Resolving]
  - Generalised oedema [Recovering/Resolving]
  - Rash [Recovering/Resolving]
  - Butterfly rash [Recovering/Resolving]

NARRATIVE: CASE EVENT DATE: 20240322
